FAERS Safety Report 5722525-9 (Version None)
Quarter: 2008Q2

REPORT INFORMATION
  Report Type: 
  Country: None (occurrence: None)
  Receive Date: 20080429
  Receipt Date: 20070814
  Transmission Date: 20081010
  Serious: No
  Sender: FDA-Public Use
  Company Number: US-ASTRAZENECA-2007UW19656

PATIENT
  Age: 58 Year
  Sex: Male
  Weight: 63.5 kg

DRUGS (3)
  1. NEXIUM [Suspect]
     Indication: CHOKING
     Route: 048
     Dates: start: 20070801
  2. NEXIUM [Suspect]
     Indication: GASTROOESOPHAGEAL REFLUX DISEASE
     Route: 048
     Dates: start: 20070801
  3. TYLENOL [Concomitant]

REACTIONS (4)
  - CHEST DISCOMFORT [None]
  - CONSTIPATION [None]
  - DRY MOUTH [None]
  - SINUS DISORDER [None]
